FAERS Safety Report 11673171 (Version 1)
Quarter: 2015Q4

REPORT INFORMATION
  Report Type: Spontaneous
  Country: US (occurrence: US)
  Receive Date: 20151027
  Receipt Date: 20151027
  Transmission Date: 20160304
  Serious: No
  Sender: FDA-Public Use
  Company Number: US-ELI_LILLY_AND_COMPANY-US201006003425

PATIENT
  Age: 54 Year
  Sex: Female

DRUGS (1)
  1. FORTEO [Suspect]
     Active Substance: TERIPARATIDE
     Indication: OSTEOMALACIA
     Dosage: 20 UG, DAILY (1/D)
     Dates: start: 20100322

REACTIONS (9)
  - Nausea [Unknown]
  - Myalgia [Unknown]
  - Abdominal discomfort [Unknown]
  - Off label use [Not Recovered/Not Resolved]
  - Hypokinesia [Unknown]
  - Influenza like illness [Unknown]
  - Fibromyalgia [Unknown]
  - Systemic lupus erythematosus [Unknown]
  - Arthralgia [Unknown]

NARRATIVE: CASE EVENT DATE: 20100322
